APPROVED DRUG PRODUCT: DROSPIRENONE, ETHINYL ESTRADIOL AND LEVOMEFOLATE CALCIUM
Active Ingredient: DROSPIRENONE; ETHINYL ESTRADIOL; LEVOMEFOLATE CALCIUM
Strength: 3MG,N/A;0.02MG,N/A;0.451MG,0.451MG
Dosage Form/Route: TABLET;ORAL
Application: A203593 | Product #001 | TE Code: AB
Applicant: WATSON LABORATORIES INC
Approved: Oct 11, 2016 | RLD: No | RS: No | Type: RX